FAERS Safety Report 4487054-1 (Version None)
Quarter: 2004Q4

REPORT INFORMATION
  Report Type: 
  Country: None (occurrence: None)
  Receive Date: 20041027
  Receipt Date: 20040702
  Transmission Date: 20050328
  Serious: Yes (Death)
  Sender: FDA-Public Use
  Company Number: US-GLAXOSMITHKLINE-A0516933A

PATIENT
  Age: 26 Year
  Sex: Female
  Weight: 109.1 kg

DRUGS (2)
  1. LAMICTAL [Suspect]
     Indication: EPILEPSY
     Route: 048
     Dates: start: 20010101, end: 20040306
  2. NO CONCURRENT MEDICATION [Concomitant]

REACTIONS (20)
  - ALANINE AMINOTRANSFERASE INCREASED [None]
  - ASPARTATE AMINOTRANSFERASE INCREASED [None]
  - BLOOD BILIRUBIN DECREASED [None]
  - CARDIAC ARREST [None]
  - CARDIO-RESPIRATORY ARREST [None]
  - DIZZINESS [None]
  - EAR PAIN [None]
  - ELECTROENCEPHALOGRAM ABNORMAL [None]
  - EPILEPSY [None]
  - HEPATIC STEATOSIS [None]
  - JOINT SPRAIN [None]
  - LIVER FUNCTION TEST ABNORMAL [None]
  - MEAN PLATELET VOLUME INCREASED [None]
  - OBESITY [None]
  - OVERWEIGHT [None]
  - PETECHIAE [None]
  - RASH [None]
  - RESPIRATORY ARREST [None]
  - TENSION HEADACHE [None]
  - WEIGHT INCREASED [None]
